FAERS Safety Report 8709886 (Version 3)
Quarter: 2012Q4

REPORT INFORMATION
  Report Type: 
  Country: DK (occurrence: JP)
  Receive Date: 20120806
  Receipt Date: 20120919
  Transmission Date: 20130627
  Serious: Yes (Other)
  Sender: FDA-Public Use
  Company Number: JP-FRI-1000037584

PATIENT
  Age: 18 Year
  Sex: Female

DRUGS (9)
  1. LEXAPRO [Suspect]
     Dosage: 20 mg
     Route: 048
  2. CYMBALTA [Concomitant]
     Dosage: 40 mg
     Route: 048
  3. LENDORMIN D [Concomitant]
     Dosage: 0.25 mg
     Route: 048
  4. EVAMYL [Concomitant]
     Dosage: 1 mg
     Route: 048
  5. ABILIFY [Concomitant]
     Dosage: 2 mg
     Route: 048
  6. HALCION [Concomitant]
     Route: 048
  7. SOMELIN [Concomitant]
     Route: 048
  8. SOLANAX [Concomitant]
     Route: 048
  9. DEPAS [Concomitant]
     Route: 048

REACTIONS (2)
  - Intentional self-injury [Unknown]
  - Wound [None]
